FAERS Safety Report 7704538-0 (Version None)
Quarter: 2011Q3

REPORT INFORMATION
  Report Type: 
  Country: None (occurrence: None)
  Receive Date: 20110823
  Receipt Date: 20110805
  Transmission Date: 20111222
  Serious: Yes (Hospitalization)
  Sender: FDA-Public Use
  Company Number: US-GLAXOSMITHKLINE-A0863745A

PATIENT
  Age: 45 Year
  Sex: Male
  Weight: 110.5 kg

DRUGS (10)
  1. GLIPIZIDE [Concomitant]
  2. ZETIA [Concomitant]
  3. QUINIDINE HCL [Concomitant]
  4. LISINOPRIL [Concomitant]
  5. LIPITOR [Concomitant]
  6. EFFEXOR [Concomitant]
  7. LORAZEPAM [Concomitant]
  8. AVANDIA [Suspect]
     Indication: DIABETES MELLITUS
     Dosage: 8MG PER DAY
     Route: 048
     Dates: start: 20030601, end: 20070821
  9. METFORMIN HCL [Concomitant]
  10. NEXIUM [Concomitant]

REACTIONS (3)
  - MYOCARDIAL INFARCTION [None]
  - MITRAL VALVE REPAIR [None]
  - ATRIAL FIBRILLATION [None]
